FAERS Safety Report 7580806-0 (Version None)
Quarter: 2011Q2

REPORT INFORMATION
  Report Type: 
  Country: None (occurrence: None)
  Receive Date: 20110629
  Receipt Date: 20110614
  Transmission Date: 20111010
  Serious: Yes (Other)
  Sender: FDA-Public Use
  Company Number: US-WATSON-2011-08565

PATIENT
  Sex: Female

DRUGS (6)
  1. METOCLOPRAMIDE HYDROCHLORIDE [Suspect]
     Indication: DYSPEPSIA
     Dosage: MORE OR LESS CONTINUOUS AND/OR INTERMITTENT BASIS
     Route: 065
     Dates: start: 20070501, end: 20090501
  2. METOCLOPRAMIDE HYDROCHLORIDE [Suspect]
     Indication: ABDOMINAL DISTENSION
  3. REGLAN [Suspect]
     Indication: DYSPEPSIA
     Dosage: MORE OR LESS CONTINUOUS AND/OR INTERMITTENT BASIS
     Route: 065
     Dates: start: 20070501, end: 20090501
  4. REGLAN [Suspect]
     Indication: ABDOMINAL DISTENSION
  5. METOCLOPRAMIDE HYDROCHLORIDE [Suspect]
     Indication: GASTROOESOPHAGEAL REFLUX DISEASE
  6. REGLAN [Suspect]
     Indication: GASTROOESOPHAGEAL REFLUX DISEASE

REACTIONS (10)
  - SPEECH DISORDER [None]
  - DYSKINESIA [None]
  - TREMOR [None]
  - TARDIVE DYSKINESIA [None]
  - NERVOUS SYSTEM DISORDER [None]
  - DYSTONIA [None]
  - EYE MOVEMENT DISORDER [None]
  - INCORRECT DRUG ADMINISTRATION DURATION [None]
  - PARKINSON'S DISEASE [None]
  - EXTRAPYRAMIDAL DISORDER [None]
